FAERS Safety Report 4609371-4 (Version None)
Quarter: 2005Q2

REPORT INFORMATION
  Report Type: 
  Country: None (occurrence: None)
  Receive Date: 20050301
  Receipt Date: 20041029
  Transmission Date: 20051028
  Serious: Yes (Hospitalization)
  Sender: FDA-Public Use
  Company Number: WAES 0410USA01175

PATIENT
  Age: 71 Year
  Sex: Female
  Weight: 64.4108 kg

DRUGS (9)
  1. ZETIA [Suspect]
     Indication: LOW DENSITY LIPOPROTEIN INCREASED
     Dosage: 10 MG DAILY PO
     Route: 048
     Dates: start: 20040920, end: 20040927
  2. LANOXIN [Concomitant]
  3. LASIX [Concomitant]
  4. MONOPRIL [Concomitant]
  5. PREMARIN [Concomitant]
  6. ASPIRIN [Concomitant]
  7. CHROMIUM [Concomitant]
  8. IRON [Concomitant]
  9. VITAMINS [Concomitant]

REACTIONS (6)
  - ARTHRALGIA [None]
  - CARDIOMYOPATHY [None]
  - CHEST DISCOMFORT [None]
  - DYSPNOEA [None]
  - LIPIDS INCREASED [None]
  - PANCREATITIS ACUTE [None]
